FAERS Safety Report 9324544 (Version 2)
Quarter: 2013Q2

REPORT INFORMATION
  Report Type: Spontaneous
  Country: US (occurrence: US)
  Receive Date: 20130603
  Receipt Date: 20130625
  Transmission Date: 20140414
  Serious: Yes (Hospitalization)
  Sender: FDA-Public Use
  Company Number: US-B.I. PHARMACEUTICALS,INC./RIDGEFIELD-2013-BI-15296BP

PATIENT
  Age: 67 Year
  Sex: Female
  Weight: 82 kg

DRUGS (10)
  1. PRADAXA [Suspect]
     Indication: ANTICOAGULANT THERAPY
     Dosage: 150 MG
     Route: 048
     Dates: start: 20111205, end: 20120411
  2. PRADAXA [Suspect]
     Indication: ATRIAL FIBRILLATION
  3. METFORMIN [Concomitant]
     Dosage: 1700 MG
     Route: 048
     Dates: start: 2010
  4. LISINOPRIL [Concomitant]
     Dates: start: 2010
  5. METOPROLOL [Concomitant]
     Dosage: 50 MG
     Route: 048
  6. PROPAFENONE [Concomitant]
     Dosage: 450 MG
     Route: 048
  7. GABAPENTIN [Concomitant]
     Dosage: 300 MG
     Route: 048
  8. GLIMEPIRIDE [Concomitant]
     Dosage: 2 MG
     Route: 048
  9. LOVASTATIN [Concomitant]
     Dosage: 40 MG
     Route: 048
  10. NITROFURANTOIN MACROCRYSTAL [Concomitant]
     Dosage: 200 MG
     Route: 048

REACTIONS (4)
  - Lower gastrointestinal haemorrhage [Unknown]
  - Supraventricular tachycardia [Recovered/Resolved]
  - Anaemia [Unknown]
  - Contusion [Unknown]
